FAERS Safety Report 10583244 (Version 3)
Quarter: 2014Q4

REPORT INFORMATION
  Report Type: Spontaneous
  Country: DE (occurrence: DE)
  Receive Date: 20141114
  Receipt Date: 20141226
  Transmission Date: 20150529
  Serious: Yes (Death, Hospitalization, Other)
  Sender: FDA-Public Use
  Company Number: DE-BRISTOL-MYERS SQUIBB COMPANY-21478680

PATIENT
  Age: 78 Year
  Sex: Female
  Weight: 57 kg

DRUGS (11)
  1. ORENCIA [Suspect]
     Active Substance: ABATACEPT
     Indication: RHEUMATOID ARTHRITIS
     Dosage: 125 MG, UNK
     Route: 058
     Dates: start: 20140730, end: 201408
  2. PANTOZOL [Concomitant]
     Active Substance: PANTOPRAZOLE SODIUM
  3. IBUPROFEN. [Concomitant]
     Active Substance: IBUPROFEN
  4. METHOTREXATE SODIUM. [Concomitant]
     Active Substance: METHOTREXATE SODIUM
     Indication: RHEUMATOID ARTHRITIS
  5. BONDIOL [Concomitant]
     Active Substance: ALFACALCIDOL
  6. QUENSYL [Concomitant]
     Active Substance: HYDROXYCHLOROQUINE
  7. PREDNISOLONE. [Concomitant]
     Active Substance: PREDNISOLONE
     Indication: RHEUMATOID ARTHRITIS
  8. TORASEMIDE [Concomitant]
     Active Substance: TORSEMIDE
  9. PROTELOS [Concomitant]
     Active Substance: STRONTIUM RANELATE
  10. BELOC-ZOK [Concomitant]
     Active Substance: METOPROLOL SUCCINATE
  11. NOVAMINSULFON [Concomitant]
     Active Substance: METAMIZOLE

REACTIONS (6)
  - Respiratory failure [Unknown]
  - Pneumocystis jirovecii pneumonia [Fatal]
  - Pneumonia mycoplasmal [Fatal]
  - Chlamydial infection [Fatal]
  - Right ventricular failure [Fatal]
  - Escherichia urinary tract infection [Unknown]

NARRATIVE: CASE EVENT DATE: 201409
